FAERS Safety Report 9671581 (Version 2)
Quarter: 2014Q1

REPORT INFORMATION
  Report Type: Spontaneous
  Country: US (occurrence: US)
  Receive Date: 20131106
  Receipt Date: 20140114
  Transmission Date: 20141002
  Serious: No
  Sender: FDA-Public Use
  Company Number: US-PFIZER INC-2013315354

PATIENT
  Age: 74 Year
  Sex: Female
  Weight: 79.37 kg

DRUGS (4)
  1. LYRICA [Suspect]
     Indication: POLYNEUROPATHY
     Dosage: 75 MG, 2X/DAY
     Dates: start: 20131011, end: 20131025
  2. LYRICA [Suspect]
     Indication: NEUROPATHY PERIPHERAL
  3. ATACAND [Concomitant]
     Indication: PAIN
     Dosage: 8 MG, UNK
  4. ATACAND [Concomitant]
     Dosage: 32 MG, 1X/DAY

REACTIONS (6)
  - Drug hypersensitivity [Recovered/Resolved]
  - Erythema [Recovered/Resolved]
  - Pruritus [Not Recovered/Not Resolved]
  - Epistaxis [Recovered/Resolved]
  - Burning sensation [Unknown]
  - Rhinorrhoea [Recovered/Resolved]
